FAERS Safety Report 10835828 (Version 1)
Quarter: 2015Q1

REPORT INFORMATION
  Report Type: Spontaneous
  Country: US (occurrence: None)
  Receive Date: 20150218
  Receipt Date: 20150218
  Transmission Date: 20150721
  Serious: Yes (Death)
  Sender: FDA-Public Use
  Company Number: US-ALKEM-000851

PATIENT
  Age: 77 Year
  Sex: Male

DRUGS (3)
  1. PREDNISONE. [Suspect]
     Active Substance: PREDNISONE
     Indication: MYASTHENIA GRAVIS
  2. PYRIDOSTIGMINE (PYRIDOSTIGMINE) [Concomitant]
     Active Substance: PYRIDOSTIGMINE
  3. MYCOPHENOLATE MOFETIL. [Suspect]
     Active Substance: MYCOPHENOLATE MOFETIL
     Indication: MYASTHENIA GRAVIS
     Dosage: 1500.00XXX-MG-10.0 / DAYS

REACTIONS (2)
  - Cerebral toxoplasmosis [None]
  - Off label use [None]
